FAERS Safety Report 8520775-X (Version None)
Quarter: 2012Q2

REPORT INFORMATION
  Report Type: 
  Country: None (occurrence: None)
  Receive Date: 20120409
  Receipt Date: 20120212
  Transmission Date: 20120825
  Serious: Yes (Other)
  Sender: FDA-Public Use
  Company Number: PHEH2012US000680

PATIENT
  Age: 57 Year
  Sex: Female

DRUGS (5)
  1. VALTURNA [Suspect]
     Dosage: 1 DF (300/320MG), QD
  2. CHLORTHALIDONE [Concomitant]
  3. ATENOLOL [Suspect]
     Dosage: UNK
  4. BYSTOLIC [Suspect]
     Dosage: 5 MG, QD
  5. BETA BLOCKING AGENTS (NO INGREDIENTS/SUBSTANCES) [Suspect]
     Dosage: UNK

REACTIONS (2)
  - DRUG INEFFECTIVE [None]
  - BLOOD PRESSURE INCREASED [None]
